FAERS Safety Report 21073885 (Version 11)
Quarter: 2024Q2

REPORT INFORMATION
  Report Type: Report from Study
  Country: US (occurrence: US)
  Receive Date: 20220713
  Receipt Date: 20240405
  Transmission Date: 20240715
  Serious: Yes (Hospitalization, Other)
  Sender: FDA-Public Use
  Company Number: US-ABBVIE-22K-163-4461006-00

PATIENT
  Age: 57 Year
  Sex: Female

DRUGS (8)
  1. HUMIRA [Suspect]
     Active Substance: ADALIMUMAB
     Indication: Rheumatoid arthritis
     Dosage: FORM STRENGTH: 40 MILLIGRAM?CITRATE FREE
     Route: 058
     Dates: start: 20211126, end: 20230101
  2. HUMIRA [Suspect]
     Active Substance: ADALIMUMAB
     Dosage: FORM STRENGTH: 40 MILLIGRAM?CITRATE FREE
     Route: 058
     Dates: start: 2023
  3. HUMIRA [Suspect]
     Active Substance: ADALIMUMAB
     Dosage: FORM STRENGTH: 40 MILLIGRAM
     Route: 058
  4. HUMIRA [Suspect]
     Active Substance: ADALIMUMAB
     Dosage: FORM STRENGTH: 40 MILLIGRAM LAST ADMIN DATE DEC 2021
     Route: 058
     Dates: start: 20211204
  5. HUMIRA [Suspect]
     Active Substance: ADALIMUMAB
     Dosage: LAST ADMIN DATE WAS 2021
     Route: 058
     Dates: start: 20210903
  6. MODERNA COVID-19 VACCINE [Concomitant]
     Active Substance: ELASOMERAN
     Indication: COVID-19 immunisation
     Dosage: TIME INTERVAL: TOTAL: ONE IN ONCE
     Route: 030
  7. PFIZER-BIONTECH COVID-19 VACCINE [Concomitant]
     Active Substance: TOZINAMERAN
     Indication: COVID-19 immunisation
     Dosage: TIME INTERVAL: TOTAL: ONE IN ONCE
     Route: 030
  8. PFIZER-BIONTECH COVID-19 VACCINE [Concomitant]
     Active Substance: TOZINAMERAN
     Indication: COVID-19 immunisation
     Dosage: TIME INTERVAL: TOTAL: BOOSTER DOSE (ONE IN ONCE)
     Route: 030

REACTIONS (27)
  - Gastric operation [Recovering/Resolving]
  - Rheumatoid arthritis [Not Recovered/Not Resolved]
  - Thyroid function test abnormal [Unknown]
  - Staphylococcal infection [Recovering/Resolving]
  - Malnutrition [Unknown]
  - Neuropathy peripheral [Unknown]
  - COVID-19 [Recovering/Resolving]
  - Vomiting [Unknown]
  - Gastrointestinal disorder [Unknown]
  - Fluid retention [Not Recovered/Not Resolved]
  - Hepatic enzyme increased [Recovering/Resolving]
  - Vertigo [Unknown]
  - Fall [Unknown]
  - Pneumonia [Recovered/Resolved]
  - Lower limb fracture [Recovered/Resolved]
  - Asthma [Recovering/Resolving]
  - Hypertension [Not Recovered/Not Resolved]
  - Blood urine present [Unknown]
  - Musculoskeletal stiffness [Unknown]
  - Protein total decreased [Recovering/Resolving]
  - Pain [Not Recovered/Not Resolved]
  - Pneumonia staphylococcal [Recovering/Resolving]
  - Therapeutic response shortened [Not Recovered/Not Resolved]
  - Nasopharyngitis [Unknown]
  - Illness [Unknown]
  - Joint dislocation [Unknown]
  - Haematemesis [Unknown]

NARRATIVE: CASE EVENT DATE: 20220601
